FAERS Safety Report 12085446 (Version 1)
Quarter: 2016Q1

REPORT INFORMATION
  Report Type: Not Available
  Country: None (occurrence: US)
  Receive Date: 20160217
  Receipt Date: 20160217
  Transmission Date: 20160526
  Serious: No
  Sender: FDA-Public Use
  Company Number: US-MERZ NORTH AMERICA, INC.-16MRZ-00120

PATIENT
  Sex: Female
  Weight: 46.31 kg

DRUGS (4)
  1. MELATONIN [Concomitant]
     Active Substance: MELATONIN
     Dosage: AS NEEDED FOR SLEEP
  2. XEOMIN [Suspect]
     Active Substance: INCOBOTULINUMTOXINA
     Indication: SKIN COSMETIC PROCEDURE
     Dosage: 20 UNITS TOTAL ?GLABELLAR LINES AND FOREHEAD
     Dates: start: 20160211, end: 20160211
  3. OMEGA 3 SUPPLEMENT [Concomitant]
  4. MULTIVITAMIN [Concomitant]
     Active Substance: VITAMINS

REACTIONS (5)
  - Influenza like illness [None]
  - Oropharyngeal pain [None]
  - Lymphadenopathy [None]
  - Asthenia [None]
  - Productive cough [None]
